FAERS Safety Report 8808506 (Version 1)
Quarter: 2012Q4

REPORT INFORMATION
  Report Type: Spontaneous
  Country: US (occurrence: None)
  Receive Date: 20120920
  Receipt Date: 20120920
  Transmission Date: 20130627
  Serious: Yes (Hospitalization)
  Sender: FDA-Public Use
  Company Number: None

PATIENT
  Age: 60 Year
  Sex: Male
  Weight: 141.5 kg

DRUGS (1)
  1. OXACILLIN [Suspect]
     Indication: SEPSIS
     Dosage: 12 grams 10.4ml/hr continuo IV Drip
     Route: 041
     Dates: start: 20120903, end: 20120913

REACTIONS (1)
  - Tubulointerstitial nephritis [None]
